FAERS Safety Report 11260517 (Version 1)
Quarter: 2015Q3

REPORT INFORMATION
  Report Type: Spontaneous
  Country: AU (occurrence: AU)
  Receive Date: 20150710
  Receipt Date: 20150710
  Transmission Date: 20151125
  Serious: Yes (Other)
  Sender: FDA-Public Use
  Company Number: AU-GUERBET LLC-1040458

PATIENT
  Sex: Male

DRUGS (6)
  1. HEXABRIX [Suspect]
     Active Substance: IOXAGLATE MEGLUMINE\IOXAGLATE SODIUM
  2. HYDROCHLOROTHIAZIDE. [Concomitant]
     Active Substance: HYDROCHLOROTHIAZIDE
  3. SOLPRIN(ACETYLSALICYLIC ACID) [Concomitant]
  4. LANOXIN [Concomitant]
     Active Substance: DIGOXIN
  5. APRESOLINE HYDROCHLORIDE [Concomitant]
     Active Substance: HYDRALAZINE HYDROCHLORIDE
  6. METOPROLOL TARTRATE. [Concomitant]
     Active Substance: METOPROLOL TARTRATE

REACTIONS (6)
  - Bronchospasm [Unknown]
  - Cyanosis [Unknown]
  - Hyperhidrosis [Unknown]
  - Chest pain [Unknown]
  - Laryngospasm [Unknown]
  - Tachycardia [Unknown]
